FAERS Safety Report 12001392 (Version 7)
Quarter: 2016Q2

REPORT INFORMATION
  Report Type: Spontaneous
  Country: DE (occurrence: DE)
  Receive Date: 20160204
  Receipt Date: 20160526
  Transmission Date: 20160815
  Serious: Yes (Hospitalization, Other)
  Sender: FDA-Public Use
  Company Number: DE-PFIZER INC-2016051089

PATIENT
  Age: 39 Year
  Sex: Male

DRUGS (26)
  1. RITUXIMAB [Suspect]
     Active Substance: RITUXIMAB
     Dosage: UNK
     Dates: start: 20150918
  2. RITUXIMAB [Suspect]
     Active Substance: RITUXIMAB
     Dosage: 375 MG/M2, CYCLIC
     Dates: start: 20151017, end: 20151018
  3. CYCLOPHOSPHAMIDE. [Suspect]
     Active Substance: CYCLOPHOSPHAMIDE
     Indication: NON-HODGKIN^S LYMPHOMA
     Dosage: 750 MG/M2, CYCLIC
     Dates: start: 20150826, end: 20150911
  4. DOXORUBICIN HCL [Suspect]
     Active Substance: DOXORUBICIN HYDROCHLORIDE
     Dosage: 50 MG/M2, CYCLIC
     Dates: start: 20150928
  5. EPIRUBICIN HCL [Suspect]
     Active Substance: EPIRUBICIN HYDROCHLORIDE
     Indication: NON-HODGKIN^S LYMPHOMA
     Dosage: 50 MG/M2, CYCLIC
     Dates: start: 20151017, end: 20151018
  6. CISPLATIN. [Suspect]
     Active Substance: CISPLATIN
     Dosage: 50 MG/M2, CYCLIC
     Dates: start: 20151107, end: 20151108
  7. ETOPOSIDE. [Suspect]
     Active Substance: ETOPOSIDE
     Dosage: 500 MG/M2, CYCLIC
     Dates: start: 20151107, end: 20151108
  8. ETOPOSIDE. [Suspect]
     Active Substance: ETOPOSIDE
     Dosage: 100 MG/M2, CYCLIC
     Dates: start: 20151126, end: 20151201
  9. DOXORUBICIN HCL [Suspect]
     Active Substance: DOXORUBICIN HYDROCHLORIDE
     Indication: NON-HODGKIN^S LYMPHOMA
     Dosage: 50 MG/M2, CYCLIC
     Dates: start: 20150826, end: 20150911
  10. METHOTREXATE SODIUM. [Suspect]
     Active Substance: METHOTREXATE SODIUM
     Indication: NON-HODGKIN^S LYMPHOMA
     Dosage: 3000 MG/M2, CYCLIC
     Dates: start: 20150928
  11. CISPLATIN. [Suspect]
     Active Substance: CISPLATIN
     Indication: NON-HODGKIN^S LYMPHOMA
     Dosage: 50 MG/M2, CYCLIC
     Dates: start: 20151017, end: 20151018
  12. VINCRISTINE SULFATE. [Suspect]
     Active Substance: VINCRISTINE SULFATE
     Dosage: 2 MG, CYCLIC
     Dates: start: 20150928
  13. RITUXIMAB [Suspect]
     Active Substance: RITUXIMAB
     Indication: NON-HODGKIN^S LYMPHOMA
     Dosage: 375 MG/M2, CYCLIC
     Dates: start: 20150826, end: 20150911
  14. MELPHALAN [Suspect]
     Active Substance: MELPHALAN
     Indication: NON-HODGKIN^S LYMPHOMA
     Dosage: 140 MG/M2, CYCLIC
     Dates: start: 20151126, end: 20151201
  15. RITUXIMAB [Suspect]
     Active Substance: RITUXIMAB
     Dosage: 375 MG/M2, CYCLIC
     Dates: start: 20151107, end: 20151108
  16. CYCLOPHOSPHAMIDE. [Suspect]
     Active Substance: CYCLOPHOSPHAMIDE
     Dosage: 750 MG/M2, CYCLIC
     Dates: start: 20150928
  17. PREDNISONE. [Suspect]
     Active Substance: PREDNISONE
     Dosage: 100 MG, CYCLIC
     Dates: start: 20150928
  18. EPIRUBICIN HCL [Suspect]
     Active Substance: EPIRUBICIN HYDROCHLORIDE
     Dosage: 50 MG/M2, CYCLIC
     Dates: start: 20151107, end: 20151108
  19. VINCRISTINE SULFATE. [Suspect]
     Active Substance: VINCRISTINE SULFATE
     Indication: NON-HODGKIN^S LYMPHOMA
     Dosage: 2 MG, CYCLIC
     Dates: start: 20150826, end: 20150911
  20. CYTARABINE. [Suspect]
     Active Substance: CYTARABINE
     Indication: NON-HODGKIN^S LYMPHOMA
     Dosage: 200 MG/M2, CYCLIC
     Dates: start: 20151126, end: 20151201
  21. IFOSFAMIDE. [Suspect]
     Active Substance: IFOSFAMIDE
     Dosage: 4000 MG/M2, CYCLIC
     Dates: start: 20151107, end: 20151108
  22. CARMUSTINE [Suspect]
     Active Substance: CARMUSTINE
     Indication: NON-HODGKIN^S LYMPHOMA
     Dosage: 300 MG/M2, CYCLIC
     Dates: start: 20151126, end: 20151201
  23. ETOPOSIDE. [Suspect]
     Active Substance: ETOPOSIDE
     Indication: NON-HODGKIN^S LYMPHOMA
     Dosage: 500 MG/M2, CYCLIC
     Dates: start: 20151017, end: 20151018
  24. RITUXIMAB [Suspect]
     Active Substance: RITUXIMAB
     Dosage: 375 MG/M2, CYCLIC
     Dates: start: 20150928
  25. PREDNISONE. [Suspect]
     Active Substance: PREDNISONE
     Indication: NON-HODGKIN^S LYMPHOMA
     Dosage: 100 MG, CYCLIC
     Dates: start: 20150826, end: 20150911
  26. IFOSFAMIDE. [Suspect]
     Active Substance: IFOSFAMIDE
     Indication: NON-HODGKIN^S LYMPHOMA
     Dosage: 4000 MG/M2, CYCLIC
     Dates: start: 20151017, end: 20151018

REACTIONS (8)
  - Pulmonary embolism [Unknown]
  - Lung infiltration [Unknown]
  - Non-Hodgkin^s lymphoma [Not Recovered/Not Resolved]
  - Atelectasis [Unknown]
  - Disease progression [Not Recovered/Not Resolved]
  - Lymphadenopathy [Unknown]
  - Bronchiolitis [Unknown]
  - Pericardial effusion [Unknown]

NARRATIVE: CASE EVENT DATE: 20150917
